FAERS Safety Report 8474607-9 (Version None)
Quarter: 2012Q2

REPORT INFORMATION
  Report Type: 
  Country: None (occurrence: None)
  Receive Date: 20120621
  Receipt Date: 20120611
  Transmission Date: 20120825
  Serious: Yes (Disabling)
  Sender: FDA-Public Use
  Company Number: 2012MA007309

PATIENT
  Age: 36 Year
  Sex: Female

DRUGS (4)
  1. EPIRUBICIN HYDROCHLORIDE [Suspect]
     Indication: BREAST CANCER
     Dates: start: 20081006, end: 20090119
  2. TAXOTERE [Concomitant]
  3. DOCETAXEL [Concomitant]
  4. CYCLOPHOSPHAMIDE [Concomitant]

REACTIONS (3)
  - CARDIAC FAILURE [None]
  - HEART TRANSPLANT [None]
  - PULMONARY FUNCTION TEST DECREASED [None]
